FAERS Safety Report 5837977-3 (Version None)
Quarter: 2008Q3

REPORT INFORMATION
  Report Type: 
  Country: None (occurrence: None)
  Receive Date: 20080808
  Receipt Date: 20080107
  Transmission Date: 20090109
  Serious: No
  Sender: FDA-Public Use
  Company Number: A0702784A

PATIENT
  Sex: Male

DRUGS (1)
  1. PAXIL [Suspect]
     Indication: DEPRESSION
     Dosage: 15MG UNKNOWN
     Route: 048

REACTIONS (8)
  - BEDRIDDEN [None]
  - DISABILITY [None]
  - DRUG INEFFECTIVE [None]
  - DYSPNOEA [None]
  - HEADACHE [None]
  - HYPERSENSITIVITY [None]
  - MIGRAINE [None]
  - PAIN [None]
